FAERS Safety Report 8510214-7 (Version None)
Quarter: 2012Q3

REPORT INFORMATION
  Report Type: 
  Country: None (occurrence: None)
  Receive Date: 20120713
  Receipt Date: 20120703
  Transmission Date: 20120928
  Serious: Yes (Hospitalization)
  Sender: FDA-Public Use
  Company Number: GB-FRI-1000036923

PATIENT
  Age: 68 Year

DRUGS (2)
  1. PERINDOPRIL ERBUMINE [Suspect]
  2. NEBIVOLOL [Suspect]

REACTIONS (1)
  - INTERSTITIAL LUNG DISEASE [None]
